FAERS Safety Report 8240696-X (Version None)
Quarter: 2012Q1

REPORT INFORMATION
  Report Type: 
  Country: None (occurrence: None)
  Receive Date: 20120314
  Receipt Date: 20111128
  Transmission Date: 20120608
  Serious: Yes (Other)
  Sender: FDA-Public Use
  Company Number: PHHY2011US00678

PATIENT
  Age: 49 Year
  Sex: Female

DRUGS (9)
  1. LISINOPRIL [Concomitant]
  2. BENADRYL [Concomitant]
  3. METFORMIN HCL [Concomitant]
  4. ACETAMINOPHEN [Concomitant]
  5. EXTAVIA [Suspect]
     Indication: MULTIPLE SCLEROSIS
     Dosage: 0.25 MG, QOD, SUBCUTANEOUS ; 0.062 MG, QOD, SUBCUTANEOUS ; 0.25 MG, QOD (1.0 ML), SUBCUTANEOUS
     Route: 058
     Dates: start: 20101228
  6. EXTAVIA [Suspect]
     Indication: MULTIPLE SCLEROSIS
     Dosage: 0.25 MG, QOD, SUBCUTANEOUS ; 0.062 MG, QOD, SUBCUTANEOUS ; 0.25 MG, QOD (1.0 ML), SUBCUTANEOUS
     Route: 058
     Dates: start: 20101228
  7. EXTAVIA [Suspect]
     Indication: MULTIPLE SCLEROSIS
     Dosage: 0.25 MG, QOD, SUBCUTANEOUS ; 0.062 MG, QOD, SUBCUTANEOUS ; 0.25 MG, QOD (1.0 ML), SUBCUTANEOUS
     Route: 058
     Dates: start: 20100127
  8. TIZANIDINE HCL [Concomitant]
  9. SYNTHROID [Concomitant]

REACTIONS (14)
  - INJECTION SITE DISCHARGE [None]
  - PAIN [None]
  - CHILLS [None]
  - DEPRESSION [None]
  - INJECTION SITE ERYTHEMA [None]
  - INJECTION SITE HAEMATOMA [None]
  - ARTHRALGIA [None]
  - INFLUENZA LIKE ILLNESS [None]
  - INJECTION SITE SWELLING [None]
  - MYALGIA [None]
  - SINUSITIS [None]
  - ANXIETY [None]
  - INJECTION SITE DRYNESS [None]
  - PYREXIA [None]
